FAERS Safety Report 8742906 (Version 2)
Quarter: 2013Q4

REPORT INFORMATION
  Report Type: Spontaneous
  Country: US (occurrence: US)
  Receive Date: 20120824
  Receipt Date: 20131101
  Transmission Date: 20140711
  Serious: No
  Sender: FDA-Public Use
  Company Number: US-009507513-1208USA002402

PATIENT
  Age: 19 Year
  Sex: Female

DRUGS (4)
  1. SAPHRIS [Suspect]
     Indication: BIPOLAR DISORDER
     Dosage: 5 MG, BID
     Route: 060
     Dates: start: 201207
  2. LAMICTAL [Concomitant]
  3. CYMBALTA [Concomitant]
  4. CLONAPINE [Concomitant]

REACTIONS (1)
  - Blood prolactin increased [Unknown]
